FAERS Safety Report 4554251-6 (Version None)
Quarter: 2005Q1

REPORT INFORMATION
  Report Type: 
  Country: None (occurrence: None)
  Receive Date: 20050118
  Receipt Date: 20041218
  Transmission Date: 20050727
  Serious: Yes (Hospitalization)
  Sender: FDA-Public Use
  Company Number: PHBS2004MY17081

PATIENT
  Age: 24 Year
  Sex: Female
  Weight: 62 kg

DRUGS (5)
  1. SYNTOMETRINE [Suspect]
     Indication: INDUCED LABOUR
     Dosage: 1 ML, BID
     Route: 030
     Dates: start: 20041214
  2. PITOCIN [Concomitant]
     Dosage: 40 IU/DAY
     Route: 042
  3. CYTOTEC [Concomitant]
     Dosage: 2 DF, UNK
     Route: 048
  4. TRANXEMINE [Concomitant]
  5. SANGOBION [Concomitant]

REACTIONS (5)
  - DRUG EXPOSURE DURING PREGNANCY [None]
  - DRUG INEFFECTIVE [None]
  - HAEMOGLOBIN DECREASED [None]
  - POSTPARTUM HAEMORRHAGE [None]
  - UTERINE ATONY [None]
